FAERS Safety Report 5109967-X (Version None)
Quarter: 2006Q3

REPORT INFORMATION
  Report Type: 
  Country: None (occurrence: None)
  Receive Date: 20060921
  Receipt Date: 20060912
  Transmission Date: 20061208
  Serious: Yes (Other)
  Sender: FDA-Public Use
  Company Number: BE-JNJFOC-20060503561

PATIENT
  Sex: Male
  Weight: 83 kg

DRUGS (2)
  1. SPORANOX [Suspect]
     Dosage: 1 DAY EVERY 14 DAYS
     Route: 048
  2. SPORANOX [Suspect]
     Indication: SEBORRHOEIC DERMATITIS
     Route: 048

REACTIONS (1)
  - EPILEPSY [None]
